FAERS Safety Report 10168832 (Version 2)
Quarter: 2014Q2

REPORT INFORMATION
  Report Type: Spontaneous
  Country: ID (occurrence: ID)
  Receive Date: 20140513
  Receipt Date: 20140519
  Transmission Date: 20141212
  Serious: Yes (Death, Life-Threatening, Hospitalization, Disabling)
  Sender: FDA-Public Use
  Company Number: ID-JNJFOC-20140506085

PATIENT
  Sex: Female

DRUGS (12)
  1. SPORANOX [Suspect]
     Indication: ORAL CANDIDIASIS
     Route: 048
  2. ALDACTONE [Concomitant]
     Route: 048
  3. VIAGRA [Concomitant]
     Route: 048
  4. DILATREND [Concomitant]
     Route: 048
  5. SPIRIVA [Concomitant]
     Route: 055
  6. LANOXIN [Concomitant]
     Route: 048
  7. ONBREZ [Concomitant]
     Route: 055
  8. LASIX [Concomitant]
     Route: 048
  9. AVAMYS [Concomitant]
     Route: 045
  10. MYCOSTATIN [Concomitant]
     Route: 048
  11. SALBUTAMOL [Concomitant]
     Route: 048
  12. PLAVIX [Concomitant]

REACTIONS (1)
  - Death [Fatal]
